FAERS Safety Report 13495630 (Version 1)
Quarter: 2017Q2

REPORT INFORMATION
  Report Type: Spontaneous
  Country: US (occurrence: US)
  Receive Date: 20170428
  Receipt Date: 20170428
  Transmission Date: 20170830
  Serious: Yes (Other)
  Sender: FDA-Public Use
  Company Number: US-ENDO PHARMACEUTICALS INC-2017-002540

PATIENT
  Age: 50 Year
  Sex: Male
  Weight: 106.58 kg

DRUGS (6)
  1. XIAFLEX [Suspect]
     Active Substance: COLLAGENASE CLOSTRIDIUM HISTOLYTICUM
     Dosage: UNKNOWN, FIRST INJECTION, SECOND CYCLE
     Route: 026
  2. IBUPROFEN TABLETS 800MG [Concomitant]
     Active Substance: IBUPROFEN
     Indication: ARTHRITIS
     Dosage: 800 MG, 2-3 TIMES A DAY AS NEEDED FOR PAIN
     Route: 065
     Dates: start: 2007
  3. XIAFLEX [Suspect]
     Active Substance: COLLAGENASE CLOSTRIDIUM HISTOLYTICUM
     Dosage: UNKNOWN, FIRST INJECTION, FIRST CYCLE
     Route: 026
  4. XIAFLEX [Suspect]
     Active Substance: COLLAGENASE CLOSTRIDIUM HISTOLYTICUM
     Dosage: UNKNOWN, SECOND INJECTION, FIRST CYCLE
     Route: 026
  5. LISINOPRIL TABLETS 10MG [Concomitant]
     Active Substance: LISINOPRIL
     Indication: HYPERTENSION
     Dosage: 10 MG, DAILY
     Route: 065
  6. XIAFLEX [Suspect]
     Active Substance: COLLAGENASE CLOSTRIDIUM HISTOLYTICUM
     Indication: PEYRONIE^S DISEASE
     Dosage: UNKNOWN, SECOND INJECTION, SECOND CYCLE
     Route: 026

REACTIONS (7)
  - Painful erection [Unknown]
  - Pain [Not Recovered/Not Resolved]
  - Genital contusion [Recovering/Resolving]
  - Fracture of penis [Unknown]
  - Dyspareunia [Unknown]
  - Penile contusion [Recovering/Resolving]
  - Inappropriate schedule of drug administration [Not Recovered/Not Resolved]

NARRATIVE: CASE EVENT DATE: 201610
